FAERS Safety Report 10387448 (Version 3)
Quarter: 2014Q3

REPORT INFORMATION
  Report Type: Spontaneous
  Country: FR (occurrence: FR)
  Receive Date: 20140815
  Receipt Date: 20140905
  Transmission Date: 20150326
  Serious: Yes (Death, Hospitalization, Other)
  Sender: FDA-Public Use
  Company Number: FR-PFIZER INC-2014223646

PATIENT
  Age: 14 Year
  Sex: Female
  Weight: 40 kg

DRUGS (4)
  1. UVEDOSE [Concomitant]
     Active Substance: CHOLECALCIFEROL
     Dosage: UNK, EVERY 3 MONTHS
  2. SPASFON [Concomitant]
     Active Substance: PHLOROGLUCINOL
     Dosage: UNK, AS NEEDED
  3. RISPERDAL [Interacting]
     Active Substance: RISPERIDONE
     Indication: ABNORMAL BEHAVIOUR
     Dosage: 2.5 MG, 1X/DAY
     Route: 048
     Dates: start: 20111114
  4. GENOTONORM [Suspect]
     Active Substance: SOMATROPIN
     Indication: PRADER-WILLI SYNDROME
     Dosage: 1.2 MG, DAILY (7 INJECTIONS/WEEK)
     Route: 058
     Dates: start: 20020105

REACTIONS (7)
  - Pulmonary embolism [Fatal]
  - Gastric dilatation [Fatal]
  - Asphyxia [Fatal]
  - Cardio-respiratory arrest [Fatal]
  - Abdominal distension [Unknown]
  - Food interaction [Unknown]
  - Abdominal pain [Unknown]

NARRATIVE: CASE EVENT DATE: 201408
